FAERS Safety Report 9360781 (Version 1)
Quarter: 2013Q2

REPORT INFORMATION
  Report Type: Spontaneous
  Country: US (occurrence: None)
  Receive Date: 20130620
  Receipt Date: 20130620
  Transmission Date: 20140414
  Serious: No
  Sender: FDA-Public Use
  Company Number: None

PATIENT
  Age: 74 Year
  Sex: Male

DRUGS (1)
  1. ZYTIGA 250MG [Suspect]
     Indication: PROSTATE CANCER
     Route: 048
     Dates: start: 20130430, end: 20130605

REACTIONS (4)
  - Rash generalised [None]
  - Local swelling [None]
  - Local swelling [None]
  - Joint swelling [None]
